FAERS Safety Report 9292791 (Version 2)
Quarter: 2013Q2

REPORT INFORMATION
  Report Type: Spontaneous
  Country: JP (occurrence: JP)
  Receive Date: 20130516
  Receipt Date: 20130527
  Transmission Date: 20140414
  Serious: Yes (Hospitalization)
  Sender: FDA-Public Use
  Company Number: JP-ABBOTT-13X-087-1088519-00

PATIENT
  Age: 59 Year
  Sex: Female

DRUGS (2)
  1. CLARITHROMYCIN [Suspect]
     Indication: BRONCHITIS CHRONIC
     Route: 048
  2. AMPICILLIN AND SULBACTAM [Concomitant]
     Indication: DIVERTICULUM INTESTINAL

REACTIONS (1)
  - Pseudomembranous colitis [Recovering/Resolving]
